FAERS Safety Report 20081831 (Version 1)
Quarter: 2021Q4

REPORT INFORMATION
  Report Type: Spontaneous
  Country: DE (occurrence: DE)
  Receive Date: 20211117
  Receipt Date: 20211117
  Transmission Date: 20220303
  Serious: Yes (Hospitalization)
  Sender: FDA-Public Use
  Company Number: DE-ADRED-06949-01

PATIENT
  Age: 81 Year
  Sex: Male

DRUGS (8)
  1. RISPERIDONE [Suspect]
     Active Substance: RISPERIDONE
     Indication: Product used for unknown indication
     Dosage: 0.5 MILLIGRAM (0.5 MG, 2-0-2-0, TABLETTEN)
     Route: 048
  2. XIPAMIDE [Concomitant]
     Active Substance: XIPAMIDE
     Dosage: 10 MILLIGRAM (10 MG, 1-0-0-0, TABLETTEN)
     Route: 048
  3. METFORMIN [Concomitant]
     Active Substance: METFORMIN HYDROCHLORIDE
     Dosage: 500 MILLIGRAM (500 MG, 1-0-1-0, TABLETTEN)
     Route: 048
  4. NALOXONE HYDROCHLORIDE\TILIDINE HYDROCHLORIDE [Concomitant]
     Active Substance: NALOXONE HYDROCHLORIDE\TILIDINE HYDROCHLORIDE
     Dosage: UNK (4/50 MG, 1-1-1-0, RETARD-TABLETTEN)
     Route: 048
  5. PANTOPRAZOLE [Concomitant]
     Active Substance: PANTOPRAZOLE
     Dosage: 40 MILLIGRAM (40 MG, 0-0-1-0, TABLETTEN)
     Route: 048
  6. ASPIRIN [Concomitant]
     Active Substance: ASPIRIN
     Dosage: 100 MILLIGRAM (100 MG, 0-1-0-0, TABLETTEN)
     Route: 048
  7. TORSEMIDE [Concomitant]
     Active Substance: TORSEMIDE
     Dosage: 20 MILLIGRAM (20 MG, 1-0-0-0, TABLETTEN)
     Route: 048
  8. TAMSULOSIN [Concomitant]
     Active Substance: TAMSULOSIN
     Dosage: 0.4 MILLIGRAM (0.4 MG, 0-0-1-0, RETARD-TABLETTEN)
     Route: 048

REACTIONS (5)
  - Delirium [Unknown]
  - Aggression [Unknown]
  - Depressed mood [Unknown]
  - Circadian rhythm sleep disorder [Unknown]
  - Confusional state [Unknown]
